FAERS Safety Report 20430242 (Version 1)
Quarter: 2022Q1

REPORT INFORMATION
  Report Type: Report from Study
  Country: FR (occurrence: FR)
  Receive Date: 20220204
  Receipt Date: 20220204
  Transmission Date: 20220423
  Serious: Yes (Other)
  Sender: FDA-Public Use
  Company Number: FR-SERVIER-S20004538

PATIENT

DRUGS (7)
  1. PEGASPARGASE [Suspect]
     Active Substance: PEGASPARGASE
     Indication: Acute lymphocytic leukaemia
     Dosage: 2130 MG, D12, D26
     Route: 042
     Dates: start: 20191027, end: 20191110
  2. VINCRISTINE SULFATE [Suspect]
     Active Substance: VINCRISTINE SULFATE
     Indication: Acute lymphocytic leukaemia
     Dosage: 1.3 MG, D8, D15, D22, D29
     Route: 042
     Dates: start: 20191023, end: 20191113
  3. DAUNORUBICIN HYDROCHLORIDE [Suspect]
     Active Substance: DAUNORUBICIN HYDROCHLORIDE
     Indication: Acute lymphocytic leukaemia
     Dosage: 25.5 MG, D8, D15, D22, D29
     Route: 042
     Dates: start: 20191023, end: 20191113
  4. PREDNISOLONE [Suspect]
     Active Substance: PREDNISOLONE
     Indication: Acute lymphocytic leukaemia
     Dosage: 51 MG, D8 TO D28
     Route: 048
     Dates: start: 20191023, end: 20191112
  5. TN UNSPCIFIED [Concomitant]
     Indication: Acute lymphocytic leukaemia
     Dosage: 12 MG, D13, D24
     Route: 037
     Dates: start: 20191028, end: 20191108
  6. TN UNSPCIFIED [Concomitant]
     Indication: Acute lymphocytic leukaemia
     Dosage: 30 MG, D13, D24
     Route: 037
     Dates: start: 20191028, end: 20191108
  7. TN UNSPCIFIED [Concomitant]
     Indication: Acute lymphocytic leukaemia
     Dosage: 15 MG, D13, D24
     Route: 037
     Dates: start: 20191028, end: 20191108

REACTIONS (3)
  - Hypofibrinogenaemia [Recovered/Resolved]
  - Hyperbilirubinaemia [Recovered/Resolved]
  - Gamma-glutamyltransferase increased [Recovered/Resolved]

NARRATIVE: CASE EVENT DATE: 20191103
